FAERS Safety Report 9292407 (Version 1)
Quarter: 2013Q2

REPORT INFORMATION
  Report Type: Report from Study
  Country: CA (occurrence: CA)
  Receive Date: 20130516
  Receipt Date: 20130516
  Transmission Date: 20140414
  Serious: Yes (Other)
  Sender: FDA-Public Use
  Company Number: CA-JNJFOC-20130401202

PATIENT
  Sex: Female
  Weight: 107 kg

DRUGS (4)
  1. REMICADE [Suspect]
     Indication: CROHN^S DISEASE
     Route: 042
     Dates: start: 20100204
  2. OXYCOCET [Concomitant]
     Route: 065
  3. NIFEDIPINE ER [Concomitant]
     Route: 065
  4. PARIET [Concomitant]
     Route: 065

REACTIONS (2)
  - Abdominal hernia [Unknown]
  - Abdominal adhesions [Unknown]
